FAERS Safety Report 7508831-6 (Version None)
Quarter: 2011Q2

REPORT INFORMATION
  Report Type: 
  Country: None (occurrence: None)
  Receive Date: 20110527
  Receipt Date: 20110518
  Transmission Date: 20111010
  Serious: Yes (Other)
  Sender: FDA-Public Use
  Company Number: PHHY2011US33053

PATIENT
  Sex: Female

DRUGS (5)
  1. GILENYA [Suspect]
     Indication: MULTIPLE SCLEROSIS
     Dosage: 0.5 MG, QD
     Route: 048
     Dates: start: 20110401, end: 20110423
  2. FAMPRIDINE [Concomitant]
     Dosage: UNK UKN, UNK
  3. EFFEXOR [Concomitant]
     Dosage: UNK UKN, UNK
  4. AVALIDE [Concomitant]
     Dosage: UNK UKN, UNK
  5. VITAMINS [Concomitant]
     Dosage: UNK UKN, UNK

REACTIONS (4)
  - LYMPHOCYTE COUNT DECREASED [None]
  - BLEPHAROSPASM [None]
  - EYE DISCHARGE [None]
  - WHITE BLOOD CELL COUNT DECREASED [None]
